FAERS Safety Report 7518414-X (Version None)
Quarter: 2011Q2

REPORT INFORMATION
  Report Type: 
  Country: None (occurrence: None)
  Receive Date: 20110601
  Receipt Date: 20110601
  Transmission Date: 20111010
  Serious: Yes (Hospitalization)
  Sender: FDA-Public Use
  Company Number: None

PATIENT
  Age: 6 Month
  Sex: Male
  Weight: 8.6183 kg

DRUGS (1)
  1. HUMPHREYS TEETHING PELLETS NOT LISTED NDC0219-110300 [Suspect]
     Indication: TEETHING
     Dosage: 3 PELLETS 2-4 HOURS PO
     Route: 048
     Dates: start: 20110524, end: 20110525

REACTIONS (4)
  - INSOMNIA [None]
  - RASH GENERALISED [None]
  - RESPIRATORY DISORDER [None]
  - HYPERSENSITIVITY [None]
